FAERS Safety Report 10100864 (Version 1)
Quarter: 2014Q2

REPORT INFORMATION
  Report Type: Spontaneous
  Country: US (occurrence: US)
  Receive Date: 20140423
  Receipt Date: 20140423
  Transmission Date: 20141212
  Serious: No
  Sender: FDA-Public Use
  Company Number: US-GILEAD-2014-0100294

PATIENT
  Sex: Female

DRUGS (1)
  1. LETAIRIS [Suspect]
     Indication: PRODUCT USED FOR UNKNOWN INDICATION
     Dosage: 5 MG, UNK
     Route: 065
     Dates: start: 20140325

REACTIONS (7)
  - Unevaluable event [Unknown]
  - Feeling abnormal [Unknown]
  - Insomnia [Unknown]
  - Device intolerance [Unknown]
  - Dyspnoea [Unknown]
  - Sinus congestion [Unknown]
  - Nasal congestion [Unknown]
